FAERS Safety Report 10483889 (Version 2)
Quarter: 2014Q3

REPORT INFORMATION
  Report Type: Report from Study
  Country: US (occurrence: US)
  Receive Date: 20140930
  Receipt Date: 20140930
  Transmission Date: 20150326
  Serious: Yes (Death, Other)
  Sender: FDA-Public Use
  Company Number: US-ASTELLAS-2014US011662

PATIENT
  Age: 69 Year
  Sex: Female

DRUGS (2)
  1. ERLOTINIB [Suspect]
     Active Substance: ERLOTINIB
     Indication: NON-SMALL CELL LUNG CANCER
     Dosage: 150 MG, 2 DAYS ON, 1 DAY OFF
     Route: 048
     Dates: end: 20090213
  2. ERLOTINIB [Suspect]
     Active Substance: ERLOTINIB
     Indication: LUNG NEOPLASM MALIGNANT
     Route: 048
     Dates: start: 20090122

REACTIONS (7)
  - Productive cough [Recovered/Resolved]
  - Fatigue [Unknown]
  - Fatigue [Recovering/Resolving]
  - Stomatitis [Recovered/Resolved]
  - Lung neoplasm malignant [Fatal]
  - Diarrhoea [Recovering/Resolving]
  - Dyspepsia [Recovered/Resolved]

NARRATIVE: CASE EVENT DATE: 20090126
